FAERS Safety Report 18158284 (Version 3)
Quarter: 2023Q4

REPORT INFORMATION
  Report Type: Spontaneous
  Country: US (occurrence: US)
  Receive Date: 20200817
  Receipt Date: 20231017
  Transmission Date: 20240110
  Serious: Yes (Other)
  Sender: FDA-Public Use
  Company Number: US-GILEAD-2020-0489757

PATIENT
  Age: 56 Year
  Sex: Male
  Weight: 81.633 kg

DRUGS (39)
  1. ATRIPLA [Suspect]
     Active Substance: EFAVIRENZ\EMTRICITABINE\TENOFOVIR DISOPROXIL FUMARATE
     Indication: HIV infection
     Dosage: UNK
     Route: 048
     Dates: start: 2014
  2. ATRIPLA [Suspect]
     Active Substance: EFAVIRENZ\EMTRICITABINE\TENOFOVIR DISOPROXIL FUMARATE
     Dosage: UNK
     Route: 048
     Dates: start: 20101125, end: 201505
  3. ATRIPLA [Suspect]
     Active Substance: EFAVIRENZ\EMTRICITABINE\TENOFOVIR DISOPROXIL FUMARATE
     Dosage: UNK
     Route: 048
     Dates: start: 201012, end: 201505
  4. AMILORIDE HCL [Concomitant]
     Active Substance: AMILORIDE HYDROCHLORIDE
     Dosage: UNK
     Dates: start: 201012, end: 201101
  5. AMLODIPINE BESYLATE [Concomitant]
     Active Substance: AMLODIPINE BESYLATE
     Dosage: UNK
     Dates: start: 201112, end: 201512
  6. HYDROCODONE [Concomitant]
     Active Substance: HYDROCODONE
  7. LISINOPRIL [Concomitant]
     Active Substance: LISINOPRIL
     Dosage: UNK
     Dates: start: 201109, end: 201506
  8. LOPERAMIDE [Concomitant]
     Active Substance: LOPERAMIDE
     Dosage: UNK
     Dates: start: 201203, end: 201212
  9. TAMSULOSIN [Concomitant]
     Active Substance: TAMSULOSIN
     Dosage: UNK
     Dates: start: 201503, end: 201506
  10. VITAMIN D NOS [Concomitant]
     Active Substance: VITAMIN D NOS
     Dosage: UNK
     Dates: start: 201502, end: 201502
  11. ALLOPURINOL [Concomitant]
     Active Substance: ALLOPURINOL
  12. AMOXICILLIN [Concomitant]
     Active Substance: AMOXICILLIN
  13. CARVEDILOL [Concomitant]
     Active Substance: CARVEDILOL
  14. DIPHENHYDRAMINE [Concomitant]
     Active Substance: DIPHENHYDRAMINE
  15. EPIVIR [Concomitant]
     Active Substance: LAMIVUDINE
  16. FLUTICASONE PROPIONATE [Concomitant]
     Active Substance: FLUTICASONE PROPIONATE
  17. GABAPENTIN [Concomitant]
     Active Substance: GABAPENTIN
  18. SUSTIVA [Concomitant]
     Active Substance: EFAVIRENZ
  19. TRIUMEQ [Concomitant]
     Active Substance: ABACAVIR SULFATE\DOLUTEGRAVIR SODIUM\LAMIVUDINE
  20. VIRACEPT [Concomitant]
     Active Substance: NELFINAVIR MESYLATE
  21. ZERIT [Concomitant]
     Active Substance: STAVUDINE
  22. ACETAMINOPHEN [Concomitant]
     Active Substance: ACETAMINOPHEN
  23. AFLURIA NOS [Concomitant]
     Active Substance: INFLUENZA VIRUS VACCINE TRIVALENT TYPE A+B AFLURIA
  24. ALBUTEROL SULFATE [Concomitant]
     Active Substance: ALBUTEROL SULFATE
  25. AMILORIDE [Concomitant]
     Active Substance: AMILORIDE
  26. AMLODIPINE BESYLATE [Concomitant]
     Active Substance: AMLODIPINE BESYLATE
  27. ATORVASTATIN [Concomitant]
     Active Substance: ATORVASTATIN
  28. CEFUROXIME [Concomitant]
     Active Substance: CEFUROXIME
  29. ESCITALOPRAM [Concomitant]
     Active Substance: ESCITALOPRAM OXALATE
  30. TRAMADOL [Concomitant]
     Active Substance: TRAMADOL\TRAMADOL HYDROCHLORIDE
  31. LEVOFLOXACIN FRESENIUS [LEVOFLOXACIN] [Concomitant]
  32. LOSARTAN [Concomitant]
     Active Substance: LOSARTAN
  33. MIRTAZAPINE [Concomitant]
     Active Substance: MIRTAZAPINE
  34. NIFEDIPINE [Concomitant]
     Active Substance: NIFEDIPINE
  35. ONDANSETRON [Concomitant]
     Active Substance: ONDANSETRON
  36. SERTRALINE [Concomitant]
     Active Substance: SERTRALINE HYDROCHLORIDE
  37. SPIRONOLACTONE [Concomitant]
     Active Substance: SPIRONOLACTONE
  38. STAVUDINE [Concomitant]
     Active Substance: STAVUDINE
  39. SULFAMETHOXAZOLE\TRIMETHOPRIM [Concomitant]
     Active Substance: SULFAMETHOXAZOLE\TRIMETHOPRIM

REACTIONS (7)
  - Chronic kidney disease [Not Recovered/Not Resolved]
  - Coronary artery disease [Not Recovered/Not Resolved]
  - Anhedonia [Unknown]
  - Emotional distress [Unknown]
  - Anxiety [Not Recovered/Not Resolved]
  - Pain [Unknown]
  - Gait disturbance [Not Recovered/Not Resolved]

NARRATIVE: CASE EVENT DATE: 20150511
